FAERS Safety Report 23263683 (Version 1)
Quarter: 2023Q4

REPORT INFORMATION
  Report Type: Spontaneous
  Country: US (occurrence: None)
  Receive Date: 20231205
  Receipt Date: 20231205
  Transmission Date: 20240110
  Serious: No
  Sender: FDA-Public Use
  Company Number: None

PATIENT
  Age: 71 Year
  Sex: Female

DRUGS (1)
  1. BETHKIS [Suspect]
     Active Substance: TOBRAMYCIN
     Indication: Cystic fibrosis
     Dosage: 300MG EVERY 12 HOURS INHALATION
     Route: 055
     Dates: start: 20231109, end: 20231109

REACTIONS (2)
  - Malaise [None]
  - Malaise [None]

NARRATIVE: CASE EVENT DATE: 20231109
